FAERS Safety Report 14949693 (Version 1)
Quarter: 2018Q2

REPORT INFORMATION
  Report Type: Report from Study
  Country: GB (occurrence: GB)
  Receive Date: 20180529
  Receipt Date: 20180529
  Transmission Date: 20180711
  Serious: Yes (Hospitalization)
  Sender: FDA-Public Use
  Company Number: GB-ALEXION PHARMACEUTICALS INC.-A201806534

PATIENT
  Age: 3 Year
  Sex: Female
  Weight: 16.3 kg

DRUGS (12)
  1. COTRIMOXAZOLE [Concomitant]
     Active Substance: SULFAMETHOXAZOLE\TRIMETHOPRIM
     Indication: PROPHYLAXIS
     Dosage: 240 MG, BID
     Route: 048
     Dates: start: 20171202
  2. FUSIDIC ACID [Concomitant]
     Active Substance: FUSIDIC ACID
     Indication: GASTRIC INFECTION
     Dosage: 1 GTT, TID
     Route: 061
     Dates: start: 20171126
  3. ACYCLOVIR                          /00587301/ [Concomitant]
     Active Substance: ACYCLOVIR
     Indication: INFECTION PROPHYLAXIS
     Dosage: 200 MG, BID
     Route: 048
     Dates: start: 20171217
  4. AMBISOME [Concomitant]
     Active Substance: AMPHOTERICIN B
     Indication: INFECTION PROPHYLAXIS
     Dosage: 15 MG, QD
     Route: 042
     Dates: start: 20171120
  5. ONDANSETRON [Concomitant]
     Active Substance: ONDANSETRON
     Indication: VOMITING
     Dosage: 3 MG, TID
     Route: 042
     Dates: start: 20171119
  6. PENICILLIN V                       /00001801/ [Concomitant]
     Active Substance: PENICILLIN V
     Indication: PROPHYLAXIS
     Dosage: 125 MG, BID
     Route: 048
     Dates: start: 20171205
  7. CYCLOSPORIN [Concomitant]
     Active Substance: CYCLOSPORINE
     Indication: PROPHYLAXIS AGAINST GRAFT VERSUS HOST DISEASE
     Dosage: 20 MG, BID
     Route: 048
     Dates: start: 20171217
  8. VITLIPID [Concomitant]
     Indication: PARENTERAL NUTRITION
     Dosage: 10 ML, QD
     Route: 042
     Dates: start: 20171125
  9. SEBELIPASE ALFA [Suspect]
     Active Substance: SEBELIPASE ALFA
     Indication: LYSOSOMAL ACID LIPASE DEFICIENCY
     Dosage: UNK
     Route: 065
     Dates: start: 20150513
  10. OMEPRAZOLE. [Concomitant]
     Active Substance: OMEPRAZOLE
     Indication: PROPHYLAXIS
     Dosage: 10 MG, QD
     Route: 048
     Dates: start: 20171206
  11. SEBELIPASE ALFA [Suspect]
     Active Substance: SEBELIPASE ALFA
     Dosage: 3 MG/KG, UNK
     Route: 065
     Dates: start: 20180516
  12. PARACETAMOL [Concomitant]
     Active Substance: ACETAMINOPHEN
     Indication: PREMEDICATION
     Dosage: 165 MG, QW
     Route: 042
     Dates: start: 20161227

REACTIONS (2)
  - Pyrexia [Unknown]
  - Nephrotic syndrome [Unknown]

NARRATIVE: CASE EVENT DATE: 20180518
